APPROVED DRUG PRODUCT: CHILDREN'S ADVIL ALLERGY SINUS
Active Ingredient: CHLORPHENIRAMINE MALEATE; IBUPROFEN; PSEUDOEPHEDRINE HYDROCHLORIDE
Strength: 1MG/5ML;100MG/5ML;15MG/5ML
Dosage Form/Route: SUSPENSION;ORAL
Application: N021587 | Product #001
Applicant: HALEON US HOLDINGS LLC
Approved: Feb 24, 2004 | RLD: Yes | RS: Yes | Type: OTC